FAERS Safety Report 7484075-1 (Version None)
Quarter: 2011Q2

REPORT INFORMATION
  Report Type: 
  Country: None (occurrence: None)
  Receive Date: 20110513
  Receipt Date: 20110513
  Transmission Date: 20111010
  Serious: Yes (Hospitalization)
  Sender: FDA-Public Use
  Company Number: None

PATIENT

DRUGS (3)
  1. DYSPORT [Suspect]
     Indication: SKIN COSMETIC PROCEDURE
     Dosage: 180 UNITS ONE TIME IM
     Route: 030
     Dates: start: 20110317, end: 20110317
  2. DYSPORT [Suspect]
     Indication: SKIN WRINKLING
     Dosage: 180 UNITS ONE TIME IM
     Route: 030
     Dates: start: 20110317, end: 20110317
  3. RESYLANE [Concomitant]

REACTIONS (6)
  - HEADACHE [None]
  - SPEECH DISORDER [None]
  - ORAL PAIN [None]
  - STOMATITIS [None]
  - EYELID PTOSIS [None]
  - HEAD DISCOMFORT [None]
